FAERS Safety Report 7496201-9 (Version None)
Quarter: 2011Q2

REPORT INFORMATION
  Report Type: 
  Country: None (occurrence: None)
  Receive Date: 20110523
  Receipt Date: 20110519
  Transmission Date: 20111010
  Serious: Yes (Other)
  Sender: FDA-Public Use
  Company Number: US-AMGEN-QUU406538

PATIENT
  Age: 57 Year
  Sex: Male

DRUGS (15)
  1. CORTICOSTEROID NOS [Concomitant]
     Dosage: UNK UNK, UNK
     Dates: start: 20090801
  2. DEMADEX [Concomitant]
  3. ALTACE [Concomitant]
  4. MULTI-VITAMINS [Concomitant]
  5. METFORMIN [Concomitant]
  6. FOLIC ACID [Concomitant]
  7. IMMUNOGLOBULINS [Concomitant]
     Dosage: UNK UNK, UNK
     Dates: start: 20090801
  8. ZEBETA [Concomitant]
  9. ASPIRIN [Concomitant]
  10. NOVOLOG [Concomitant]
  11. SPIRONOLACTONE [Concomitant]
  12. INSULIN [Concomitant]
  13. XALATAN [Concomitant]
  14. NPLATE [Suspect]
     Indication: IDIOPATHIC THROMBOCYTOPENIC PURPURA
     Dosage: 500 A?G, QWK
     Route: 058
     Dates: start: 20091028, end: 20100707
  15. NPLATE [Suspect]
     Dates: start: 20091028

REACTIONS (6)
  - ANAEMIA [None]
  - AMPUTATION [None]
  - HAEMATOLOGICAL MALIGNANCY [None]
  - DRUG INEFFECTIVE [None]
  - RENAL FAILURE CHRONIC [None]
  - DYSLIPIDAEMIA [None]
